FAERS Safety Report 22380302 (Version 1)
Quarter: 2023Q2

REPORT INFORMATION
  Report Type: Spontaneous
  Country: CN (occurrence: CN)
  Receive Date: 20230529
  Receipt Date: 20230529
  Transmission Date: 20230722
  Serious: Yes (Other)
  Sender: FDA-Public Use
  Company Number: CN-PFIZER INC-PV202300093106

PATIENT
  Age: 82 Year
  Sex: Female
  Weight: 78 kg

DRUGS (1)
  1. FLUCONAZOLE [Suspect]
     Active Substance: FLUCONAZOLE
     Indication: Anti-infective therapy
     Dosage: 0.1 G, 1X/DAY
     Route: 041
     Dates: start: 20230520, end: 20230521

REACTIONS (2)
  - Platelet count decreased [Recovering/Resolving]
  - Procalcitonin abnormal [Unknown]

NARRATIVE: CASE EVENT DATE: 20230521
